FAERS Safety Report 19429162 (Version 1)
Quarter: 2021Q2

REPORT INFORMATION
  Report Type: Report from Study
  Country: US (occurrence: US)
  Receive Date: 20210617
  Receipt Date: 20210617
  Transmission Date: 20210717
  Serious: Yes (Death, Other)
  Sender: FDA-Public Use
  Company Number: US-INCYTE CORPORATION-2021IN004555

PATIENT

DRUGS (1)
  1. JAKAFI [Suspect]
     Active Substance: RUXOLITINIB
     Indication: MYELOFIBROSIS
     Dosage: 15 MILLIGRAM, BID
     Route: 048

REACTIONS (5)
  - Product dispensing error [Unknown]
  - Cerebral haemorrhage [Fatal]
  - Fall [Fatal]
  - Incorrect dose administered [Unknown]
  - Head injury [Fatal]

NARRATIVE: CASE EVENT DATE: 20210610
